FAERS Safety Report 6511291-5 (Version None)
Quarter: 2009Q4

REPORT INFORMATION
  Report Type: 
  Country: None (occurrence: None)
  Receive Date: 20091222
  Receipt Date: 20090428
  Transmission Date: 20100525
  Serious: No
  Sender: FDA-Public Use
  Company Number: US-ASTRAZENECA-2009UW07455

PATIENT
  Age: 57 Year
  Sex: Female
  Weight: 113.4 kg

DRUGS (3)
  1. CRESTOR [Suspect]
     Indication: BLOOD CHOLESTEROL INCREASED
     Route: 048
  2. CRESTOR [Suspect]
     Route: 048
     Dates: start: 20090315
  3. VITAMINS [Concomitant]

REACTIONS (6)
  - ARTHRALGIA [None]
  - NECK PAIN [None]
  - OROPHARYNGEAL PAIN [None]
  - PAIN [None]
  - PHARYNGITIS STREPTOCOCCAL [None]
  - STREPTOCOCCAL INFECTION [None]
